FAERS Safety Report 10422673 (Version 2)
Quarter: 2015Q2

REPORT INFORMATION
  Report Type: Spontaneous
  Country: US (occurrence: US)
  Receive Date: 20140902
  Receipt Date: 20150626
  Transmission Date: 20150821
  Serious: Yes (Other)
  Sender: FDA-Public Use
  Company Number: US-UCBSA-2014010392

PATIENT
  Age: 13 Year
  Sex: Male
  Weight: 36.7 kg

DRUGS (2)
  1. PHENYTOIN. [Concomitant]
     Active Substance: PHENYTOIN
  2. VIMPAT [Suspect]
     Active Substance: LACOSAMIDE
     Dosage: 100 MG, 2X/DAY (BID)

REACTIONS (3)
  - Erythema multiforme [Recovering/Resolving]
  - Off label use [Unknown]
  - Stevens-Johnson syndrome [Recovering/Resolving]
